FAERS Safety Report 11899784 (Version 2)
Quarter: 2016Q1

REPORT INFORMATION
  Report Type: Spontaneous
  Country: US (occurrence: US)
  Receive Date: 20160108
  Receipt Date: 20160111
  Transmission Date: 20160526
  Serious: No
  Sender: FDA-Public Use
  Company Number: US-GLAXOSMITHKLINE-US2016GSK001454

PATIENT
  Age: 53 Year
  Sex: Female

DRUGS (1)
  1. LAMICTAL [Suspect]
     Active Substance: LAMOTRIGINE
     Dosage: 2 DF, QD
     Dates: start: 201512

REACTIONS (1)
  - Rash [Unknown]

NARRATIVE: CASE EVENT DATE: 201512
